FAERS Safety Report 7039309-4 (Version None)
Quarter: 2010Q4

REPORT INFORMATION
  Report Type: 
  Country: None (occurrence: None)
  Receive Date: 20101012
  Receipt Date: 20101005
  Transmission Date: 20110411
  Serious: Yes (Other)
  Sender: FDA-Public Use
  Company Number: US-SANOFI-AVENTIS-2010SA042988

PATIENT
  Age: 65 Year
  Sex: Female
  Weight: 104 kg

DRUGS (4)
  1. LANTUS [Suspect]
     Indication: TYPE 2 DIABETES MELLITUS
     Dosage: DOSE:34 UNIT(S)
     Route: 058
     Dates: start: 20070101
  2. OPTICLICK [Suspect]
  3. AVANDIA [Suspect]
  4. GLIMEPIRIDE [Concomitant]
     Route: 065

REACTIONS (3)
  - CATARACT [None]
  - MYOCARDIAL INFARCTION [None]
  - VISUAL ACUITY REDUCED [None]
